FAERS Safety Report 10051231 (Version 2)
Quarter: 2014Q2

REPORT INFORMATION
  Report Type: Spontaneous
  Country: DK (occurrence: FR)
  Receive Date: 20140401
  Receipt Date: 20140401
  Transmission Date: 20141212
  Serious: Yes (Other)
  Sender: FDA-Public Use
  Company Number: FR-FRI-1000049998

PATIENT
  Age: 45 Year
  Sex: Female

DRUGS (6)
  1. ESCITALOPRAM [Suspect]
     Indication: DEPRESSION
     Dosage: 30 MG
     Route: 048
     Dates: start: 201302
  2. ESCITALOPRAM [Suspect]
     Indication: BIPOLAR DISORDER
  3. TERCIAN [Suspect]
     Indication: BIPOLAR DISORDER
     Dosage: 50 MG
     Route: 048
     Dates: start: 2011
  4. TERALITHE [Concomitant]
     Indication: BIPOLAR DISORDER
     Dosage: 1400 MG
     Route: 048
     Dates: start: 201103
  5. ZOPICLONE [Concomitant]
     Indication: BIPOLAR DISORDER
     Dosage: 7.5 MG
     Route: 048
     Dates: start: 2010
  6. TEMERIT [Concomitant]
     Indication: HYPERTENSION
     Dosage: 5 MG
     Route: 048

REACTIONS (3)
  - Electrocardiogram QT prolonged [Recovered/Resolved]
  - Overdose [Not Recovered/Not Resolved]
  - Labelled drug-drug interaction medication error [Recovered/Resolved]
